FAERS Safety Report 22964500 (Version 2)
Quarter: 2024Q2

REPORT INFORMATION
  Report Type: Spontaneous
  Country: US (occurrence: US)
  Receive Date: 20230921
  Receipt Date: 20240418
  Transmission Date: 20240716
  Serious: No
  Sender: FDA-Public Use
  Company Number: US-ABBVIE-5416222

PATIENT
  Sex: Female

DRUGS (1)
  1. KYBELLA [Suspect]
     Active Substance: DEOXYCHOLIC ACID
     Indication: Fat tissue increased
     Dosage: TIME INTERVAL: AS NECESSARY: 2 TIMES OR DOSES 1 MONTH APART
     Route: 058

REACTIONS (1)
  - Nodule [Not Recovered/Not Resolved]
